FAERS Safety Report 16789633 (Version 1)
Quarter: 2019Q3

REPORT INFORMATION
  Report Type: Spontaneous
  Country: ES (occurrence: ES)
  Receive Date: 20190910
  Receipt Date: 20190910
  Transmission Date: 20191005
  Serious: Yes (Hospitalization)
  Sender: FDA-Public Use
  Company Number: ES-ACCORD-154359

PATIENT
  Age: 78 Year
  Sex: Female

DRUGS (10)
  1. RISPERIDONE. [Suspect]
     Active Substance: RISPERIDONE
     Indication: ANXIETY
     Dosage: 5MG/5ML
     Route: 048
     Dates: start: 20190521, end: 20190822
  2. CALCIFEDIOL [Concomitant]
     Active Substance: CALCIFEDIOL
  3. LOSARTAN. [Concomitant]
     Active Substance: LOSARTAN
     Dosage: STRENGTH: 50 MG
  4. OMEPRAZOLE CINFAMED [Concomitant]
     Dosage: STRENGTH: 20 MG GASTRO-RESISTANT HARD CAPSULE EFG, 28 CAPSULES
  5. ACETYLSALICYLIC ACID [Concomitant]
     Active Substance: ASPIRIN
  6. BISOPROLOL [Concomitant]
     Active Substance: BISOPROLOL
     Dosage: STRENGTH: 2.5 MG
  7. TRAZODONE [Suspect]
     Active Substance: TRAZODONE HYDROCHLORIDE
     Indication: SLEEP ATTACKS
     Dosage: STRENGTH: 100 MG
     Route: 048
     Dates: start: 20190521
  8. REPAGLINIDE. [Concomitant]
     Active Substance: REPAGLINIDE
     Dosage: STRENGTH: 2 MG
  9. TOUJEO [Concomitant]
     Active Substance: INSULIN GLARGINE
     Dosage: STRENGTH: 300 UNITS / ML SOLUTION FOR INJECTION IN PRE-FILLED PEN 3 PENS 1.5 ML
  10. DARBEPOETIN ALFA [Concomitant]
     Active Substance: DARBEPOETIN ALFA
     Dosage: STRENGTH: 30 MICROGRAMS INJECTABLE 0.3 ML PRE-FILLED SYRINGE

REACTIONS (3)
  - Confusional state [Unknown]
  - Parkinsonism [Recovering/Resolving]
  - Off label use [Unknown]

NARRATIVE: CASE EVENT DATE: 20190815
